FAERS Safety Report 4823359-X (Version None)
Quarter: 2005Q4

REPORT INFORMATION
  Report Type: 
  Country: None (occurrence: None)
  Receive Date: 20051107
  Receipt Date: 20051028
  Transmission Date: 20060501
  Serious: Yes (Hospitalization)
  Sender: FDA-Public Use
  Company Number: OMPQ-NO-0507S-1010

PATIENT
  Age: 20 Year
  Sex: Female
  Weight: 45 kg

DRUGS (2)
  1. OMNIPAQUE 140 [Suspect]
     Indication: APPENDICITIS
     Dosage: 100 ML, SINGLE DOSE, I.V.
     Route: 042
     Dates: start: 20050625, end: 20050625
  2. LEVOFLOXACIN [Concomitant]

REACTIONS (13)
  - BLOOD BILIRUBIN INCREASED [None]
  - BLOOD LACTATE DEHYDROGENASE INCREASED [None]
  - CHROMATURIA [None]
  - ENTEROCOLITIS [None]
  - HAEMATOCHEZIA [None]
  - HAEMOLYTIC ANAEMIA [None]
  - HAEMOLYTIC URAEMIC SYNDROME [None]
  - HAEMORRHAGIC DIATHESIS [None]
  - MUCOUS STOOLS [None]
  - PLATELET COUNT DECREASED [None]
  - RENAL DISORDER [None]
  - THROMBOTIC THROMBOCYTOPENIC PURPURA [None]
  - URINE OUTPUT DECREASED [None]
